FAERS Safety Report 5559945-1 (Version None)
Quarter: 2007Q4

REPORT INFORMATION
  Report Type: 
  Country: None (occurrence: None)
  Receive Date: 20071214
  Receipt Date: 20071021
  Transmission Date: 20080405
  Serious: No
  Sender: FDA-Public Use
  Company Number: US-ABBOTT-07P-163-0422069-00

PATIENT
  Sex: Male
  Weight: 136.4 kg

DRUGS (6)
  1. HUMIRA [Suspect]
     Indication: PSORIATIC ARTHROPATHY
     Route: 058
     Dates: start: 20060101
  2. BUDESONIDE [Concomitant]
     Indication: DRUG USE FOR UNKNOWN INDICATION
  3. PAROXETINE HCL [Concomitant]
     Indication: DEPRESSION
  4. HYDROTHORAZINE [Concomitant]
     Indication: DRUG USE FOR UNKNOWN INDICATION
  5. INFLUENZA VIRUS VACCINE POLYVALENT [Concomitant]
     Indication: DRUG USE FOR UNKNOWN INDICATION
  6. PNEUMONIA VACCINE [Concomitant]
     Indication: DRUG USE FOR UNKNOWN INDICATION

REACTIONS (6)
  - AGITATION [None]
  - ARTHRALGIA [None]
  - ASPIRATION JOINT [None]
  - DEPRESSED MOOD [None]
  - PAIN [None]
  - SINUSITIS [None]
